FAERS Safety Report 14908175 (Version 1)
Quarter: 2018Q2

REPORT INFORMATION
  Report Type: Report from Study
  Country: IT (occurrence: IT)
  Receive Date: 20180517
  Receipt Date: 20180517
  Transmission Date: 20180711
  Serious: Yes (Hospitalization)
  Sender: FDA-Public Use
  Company Number: IT-ROCHE-2123048

PATIENT
  Age: 62 Year
  Sex: Male

DRUGS (5)
  1. COBIMETINIB. [Suspect]
     Active Substance: COBIMETINIB
     Indication: HAIRY CELL LEUKAEMIA
     Dosage: LAST DOSE PRIOR TO EVENT 01/MAY/2018
     Route: 048
     Dates: start: 20180326
  2. PERINDOPRIL [Concomitant]
     Active Substance: PERINDOPRIL
     Indication: HYPERTENSION
     Route: 048
  3. DOXAZOCIN [Concomitant]
     Active Substance: DOXAZOSIN MESYLATE
     Indication: HYPERTENSION
     Route: 048
  4. LANSOPRAZOLE. [Concomitant]
     Active Substance: LANSOPRAZOLE
     Indication: GASTROOESOPHAGEAL REFLUX DISEASE
     Route: 048
  5. VEMURAFENIB. [Suspect]
     Active Substance: VEMURAFENIB
     Indication: HAIRY CELL LEUKAEMIA
     Dosage: LAST DOSE PRIOR TO EVENT 09/MAY/2018
     Route: 048
     Dates: start: 20180326

REACTIONS (1)
  - Pancreatitis acute [Not Recovered/Not Resolved]

NARRATIVE: CASE EVENT DATE: 20180509
